FAERS Safety Report 10497396 (Version 1)
Quarter: 2014Q4

REPORT INFORMATION
  Report Type: Spontaneous
  Country: IT (occurrence: None)
  Receive Date: 20141002
  Receipt Date: 20141002
  Transmission Date: 20150528
  Serious: Yes (Death)
  Sender: FDA-Public Use
  Company Number: COR_00077_2014

PATIENT
  Sex: Male

DRUGS (6)
  1. ETOPOSIDE. [Suspect]
     Active Substance: ETOPOSIDE
     Indication: GERM CELL CANCER
     Dosage: (100 MG/M2, D1-2)
  2. CYCLOPHOSPHAMIDE. [Suspect]
     Active Substance: CYCLOPHOSPHAMIDE
     Indication: GERM CELL CANCER
     Dosage: (600 MG/M2, D8)?
  3. METHOTREXATE [Suspect]
     Active Substance: METHOTREXATE
     Indication: GERM CELL CANCER
     Dosage: (100 MG/M2, D1)
  4. VINCRISTINE [Suspect]
     Active Substance: VINCRISTINE
     Indication: GERM CELL CANCER
     Dosage: (1 MG/M2, D8)?
  5. DACTINOMYCIN [Suspect]
     Active Substance: DACTINOMYCIN
     Indication: GERM CELL CANCER
     Dosage: (0.5 MG/M2, D1-2)
  6. FOLINIC ACID [Suspect]
     Active Substance: LEUCOVORIN
     Indication: GERM CELL CANCER
     Dosage: (15 MG 1X/6 HOURS, D2-3 ORAL)
     Route: 048

REACTIONS (2)
  - Cerebral haemorrhage [None]
  - Toxicity to various agents [None]
